FAERS Safety Report 7496523-1 (Version None)
Quarter: 2011Q2

REPORT INFORMATION
  Report Type: 
  Country: None (occurrence: None)
  Receive Date: 20110520
  Receipt Date: 20110520
  Transmission Date: 20111010
  Serious: Yes (Hospitalization)
  Sender: FDA-Public Use
  Company Number: None

PATIENT
  Sex: Male
  Weight: 79.9 kg

DRUGS (3)
  1. ERBITUX [Suspect]
     Dosage: 784 MG
     Dates: end: 20110502
  2. CISPLATIN [Suspect]
     Dosage: 49 MG
     Dates: end: 20110502
  3. TAXOL [Suspect]
     Dosage: 96 MG
     Dates: end: 20110502

REACTIONS (5)
  - OESOPHAGEAL ULCER [None]
  - FUNGAL INFECTION [None]
  - DUODENITIS [None]
  - GASTRITIS [None]
  - OESOPHAGEAL NEOPLASM [None]
